FAERS Safety Report 7556160-7 (Version None)
Quarter: 2011Q2

REPORT INFORMATION
  Report Type: 
  Country: None (occurrence: None)
  Receive Date: 20110620
  Receipt Date: 20110613
  Transmission Date: 20111010
  Serious: No
  Sender: FDA-Public Use
  Company Number: US-BIOGENIDEC-2011BI021947

PATIENT
  Age: 59 Year
  Sex: Male

DRUGS (5)
  1. MAXZIDE [Concomitant]
     Indication: HYPERTENSION
  2. CLONAZEPAM [Concomitant]
     Indication: TREMOR
  3. XANAX [Concomitant]
     Indication: TREMOR
  4. TYSABRI [Suspect]
     Indication: MULTIPLE SCLEROSIS
     Route: 042
     Dates: start: 20110124
  5. BACLOFEN [Concomitant]
     Indication: TREMOR

REACTIONS (4)
  - HYPERTENSION [None]
  - EXCORIATION [None]
  - OEDEMA PERIPHERAL [None]
  - FALL [None]
